FAERS Safety Report 15941121 (Version 2)
Quarter: 2020Q1

REPORT INFORMATION
  Report Type: Spontaneous
  Country: US (occurrence: US)
  Receive Date: 20190208
  Receipt Date: 20200311
  Transmission Date: 20200409
  Serious: Yes (Other)
  Sender: FDA-Public Use
  Company Number: US-ASTRAZENECA-2019SE09334

PATIENT
  Age: 22928 Day
  Sex: Male
  Weight: 132 kg

DRUGS (23)
  1. RAMIPRIL. [Concomitant]
     Active Substance: RAMIPRIL
     Dates: start: 20080118
  2. CYCLOBENZAPRINE. [Concomitant]
     Active Substance: CYCLOBENZAPRINE
     Dates: start: 20120730
  3. BUMETANIDE. [Concomitant]
     Active Substance: BUMETANIDE
     Dates: start: 20161102
  4. PRILOSEC [Suspect]
     Active Substance: OMEPRAZOLE MAGNESIUM
     Route: 048
     Dates: start: 200001
  5. SIMVASTATIN. [Concomitant]
     Active Substance: SIMVASTATIN
  6. BYETTA [Concomitant]
     Active Substance: EXENATIDE
  7. FUROSEMIDE. [Concomitant]
     Active Substance: FUROSEMIDE
  8. GABAPENTIN. [Concomitant]
     Active Substance: GABAPENTIN
     Dates: start: 20130220
  9. CEPHALEXIN. [Concomitant]
     Active Substance: CEPHALEXIN
     Dates: start: 20080528
  10. NITROGLYCERIN. [Concomitant]
     Active Substance: NITROGLYCERIN
  11. ASPIRIN. [Concomitant]
     Active Substance: ASPIRIN
     Dates: start: 20161102
  12. VALIUM [Concomitant]
     Active Substance: DIAZEPAM
  13. HYDROCODONE BITARTRATE AND ACETAMINOPHEN [Concomitant]
     Active Substance: ACETAMINOPHEN\HYDROCODONE BITARTRATE
     Dates: start: 20080710
  14. ALLOPURINOL. [Concomitant]
     Active Substance: ALLOPURINOL
     Dates: start: 20080517
  15. PLAVIX [Concomitant]
     Active Substance: CLOPIDOGREL BISULFATE
  16. ALLOPURINOL. [Concomitant]
     Active Substance: ALLOPURINOL
     Dates: start: 20080118
  17. ZETIA [Concomitant]
     Active Substance: EZETIMIBE
     Dates: start: 20080226
  18. NORVASC [Concomitant]
     Active Substance: AMLODIPINE BESYLATE
  19. PROAIR HFA [Concomitant]
     Active Substance: ALBUTEROL SULFATE
  20. SIMVASTATIN. [Concomitant]
     Active Substance: SIMVASTATIN
     Dates: start: 20080325
  21. CIPROFLOXACIN. [Concomitant]
     Active Substance: CIPROFLOXACIN
     Dates: start: 20120503
  22. VITAMIN B12 [Concomitant]
     Active Substance: CYANOCOBALAMIN
     Dates: start: 20161102
  23. METOPROLOL SUCCINATE. [Concomitant]
     Active Substance: METOPROLOL SUCCINATE

REACTIONS (5)
  - Renal injury [Unknown]
  - Renal failure [Unknown]
  - Rebound acid hypersecretion [Unknown]
  - Acute kidney injury [Unknown]
  - Chronic kidney disease [Unknown]

NARRATIVE: CASE EVENT DATE: 20140529
